FAERS Safety Report 4523672-X (Version None)
Quarter: 2004Q4

REPORT INFORMATION
  Report Type: 
  Country: None (occurrence: None)
  Receive Date: 20041210
  Receipt Date: 20040514
  Transmission Date: 20050328
  Serious: Yes (Death, Hospitalization)
  Sender: FDA-Public Use
  Company Number: US-GLAXOSMITHKLINE-A0511882A

PATIENT
  Age: 60 Year
  Sex: Male

DRUGS (8)
  1. AVANDIA [Suspect]
     Indication: DIABETES MELLITUS NON-INSULIN-DEPENDENT
     Dosage: 8MG PER DAY
     Route: 048
     Dates: start: 20000101, end: 20011106
  2. AMARYL [Concomitant]
  3. ZESTRIL [Concomitant]
  4. KCL TAB [Concomitant]
  5. TRENTAL [Concomitant]
  6. COUMADIN [Concomitant]
  7. NITROPATCH [Concomitant]
  8. LIPITOR [Concomitant]

REACTIONS (10)
  - ANAEMIA [None]
  - BRONCHITIS ACUTE [None]
  - BRONCHOSPASM [None]
  - CARDIAC FAILURE CONGESTIVE [None]
  - CORONARY ARTERY SURGERY [None]
  - MYOCARDIAL ISCHAEMIA [None]
  - RESPIRATORY FAILURE [None]
  - SHOCK [None]
  - VASCULAR PSEUDOANEURYSM [None]
  - VENTRICULAR HYPERTROPHY [None]
